FAERS Safety Report 10697842 (Version 2)
Quarter: 2015Q1

REPORT INFORMATION
  Report Type: Spontaneous
  Country: US (occurrence: US)
  Receive Date: 20150108
  Receipt Date: 20150108
  Transmission Date: 20150721
  Serious: Yes (Death)
  Sender: FDA-Public Use
  Company Number: US-PFIZER INC-2015004777

PATIENT
  Age: 69 Year
  Sex: Male

DRUGS (9)
  1. MYCOPHENOLATE MOFETIL. [Suspect]
     Active Substance: MYCOPHENOLATE MOFETIL
     Indication: GRAFT VERSUS HOST DISEASE
     Dosage: UNK
  2. CYCLOPHOSPHAMIDE. [Suspect]
     Active Substance: CYCLOPHOSPHAMIDE
     Indication: IMMUNOSUPPRESSION
     Dosage: 50 MG/KG
  3. METHYLPREDNISOLONE. [Suspect]
     Active Substance: METHYLPREDNISOLONE
     Indication: GRAFT VERSUS HOST DISEASE
     Dosage: 2 MG/KG, UNK
  4. MIRTAZAPINE. [Concomitant]
     Active Substance: MIRTAZAPINE
     Dosage: 30 MG, DAILY
  5. IMMUNOGLOBULIN [Concomitant]
     Active Substance: HUMAN IMMUNOGLOBULIN G
     Dosage: 1 DOSE AT 0.5G/KG
     Route: 042
  6. TACROLIMUS. [Suspect]
     Active Substance: TACROLIMUS
     Indication: IMMUNOSUPPRESSION
     Dosage: UNK
  7. PENTOSTATIN. [Suspect]
     Active Substance: PENTOSTATIN
     Indication: GRAFT VERSUS HOST DISEASE
     Dosage: 1.5 MG/M2 ON DAYS 1 THROUGH 3
  8. MEFLOQUINE [Concomitant]
     Active Substance: MEFLOQUINE
     Dosage: 250 MG, DAILY
  9. MEFLOQUINE [Concomitant]
     Active Substance: MEFLOQUINE
     Dosage: 250 MG, WEEKLY

REACTIONS (1)
  - Progressive multifocal leukoencephalopathy [Fatal]
